FAERS Safety Report 14685641 (Version 1)
Quarter: 2018Q1

REPORT INFORMATION
  Report Type: Spontaneous
  Country: US (occurrence: US)
  Receive Date: 20180327
  Receipt Date: 20180327
  Transmission Date: 20180509
  Serious: Yes (Other)
  Sender: FDA-Public Use
  Company Number: None

PATIENT
  Age: 46 Year
  Sex: Female
  Weight: 81.65 kg

DRUGS (3)
  1. TYLENOL [Concomitant]
     Active Substance: ACETAMINOPHEN
  2. ASPIRIN. [Concomitant]
     Active Substance: ASPIRIN
  3. CONTRAVE [Suspect]
     Active Substance: BUPROPION HYDROCHLORIDE\NALTREXONE HYDROCHLORIDE
     Indication: WEIGHT DECREASED
     Dosage: 8MG/90MG 1 TAB X 7 DAYS, THEN INCREASE 1 TWICE A DAY X 7 DAYS THEN 2 IN THE AM AND 1 IN THE PM X 7 DAYS THEN 2 TWICE A DAY 1 PILL DAILY FOR 8 DAYS WAS TOLD NOT TO INCREASE PER NURSE BY MOUTH
     Route: 048
     Dates: start: 20180308, end: 20180315

REACTIONS (13)
  - Palpitations [None]
  - Feeling jittery [None]
  - Nausea [None]
  - Insomnia [None]
  - Vision blurred [None]
  - Headache [None]
  - Dizziness [None]
  - Feeling abnormal [None]
  - Hyperhidrosis [None]
  - Decreased appetite [None]
  - Heart rate increased [None]
  - Mood altered [None]
  - Blood pressure increased [None]

NARRATIVE: CASE EVENT DATE: 20180308
